FAERS Safety Report 25112951 (Version 2)
Quarter: 2025Q1

REPORT INFORMATION
  Report Type: Spontaneous
  Country: US (occurrence: US)
  Receive Date: 20250324
  Receipt Date: 20250331
  Transmission Date: 20250409
  Serious: Yes (Hospitalization, Other)
  Sender: PROCTER AND GAMBLE
  Company Number: US-PROCTER+GAMBLE-PH25001907

PATIENT
  Age: 16 Year
  Sex: Male

DRUGS (3)
  1. DEXTROMETHORPHAN [Suspect]
     Active Substance: DEXTROMETHORPHAN
     Indication: Substance use
     Route: 048
  2. BUTANE [Suspect]
     Active Substance: BUTANE
     Indication: Substance use
  3. ALCOHOL [Suspect]
     Active Substance: ALCOHOL
     Indication: Substance use
     Route: 048

REACTIONS (8)
  - Accidental overdose [Unknown]
  - Drug dependence [Unknown]
  - Drug abuse [Unknown]
  - Substance use disorder [Unknown]
  - Disorganised speech [Unknown]
  - Distractibility [Unknown]
  - Paranoia [Unknown]
  - Drug use disorder [Unknown]
